FAERS Safety Report 16818549 (Version 2)
Quarter: 2019Q3

REPORT INFORMATION
  Report Type: Report from Study
  Country: US (occurrence: US)
  Receive Date: 20190917
  Receipt Date: 20190930
  Transmission Date: 20191005
  Serious: Yes (Death, Other)
  Sender: FDA-Public Use
  Company Number: US-BAYER-2019-166696

PATIENT
  Age: 43 Year
  Sex: Male

DRUGS (1)
  1. STIVARGA [Suspect]
     Active Substance: REGORAFENIB
     Indication: HEPATIC CANCER
     Dosage: 120 MG DAILY FOR 21 DAYS THEN OFF 7 DAYS
     Route: 048
     Dates: start: 20190802, end: 20190916

REACTIONS (9)
  - Asthenia [Not Recovered/Not Resolved]
  - Confusional state [Not Recovered/Not Resolved]
  - Pain [Not Recovered/Not Resolved]
  - Off label use [None]
  - Intentional dose omission [Not Recovered/Not Resolved]
  - Product dose omission [Unknown]
  - Death [Fatal]
  - Mobility decreased [Not Recovered/Not Resolved]
  - Decreased appetite [Not Recovered/Not Resolved]

NARRATIVE: CASE EVENT DATE: 20190802
